FAERS Safety Report 18900676 (Version 1)
Quarter: 2021Q1

REPORT INFORMATION
  Report Type: Report from Study
  Country: US (occurrence: US)
  Receive Date: 20210216
  Receipt Date: 20210216
  Transmission Date: 20210420
  Serious: Yes (Hospitalization)
  Sender: FDA-Public Use
  Company Number: US-THERAPEUTICSMD-2021TMD00041

PATIENT
  Sex: Female
  Weight: 72.11 kg

DRUGS (10)
  1. IMVEXXY [Suspect]
     Active Substance: ESTRADIOL
     Indication: VULVOVAGINAL PAIN
     Dosage: 4 ?G, 2X/WEEK BEFORE BED
     Dates: start: 2019, end: 20200922
  2. CALCIUM [Concomitant]
     Active Substance: CALCIUM
  3. IMVEXXY [Suspect]
     Active Substance: ESTRADIOL
     Indication: VULVOVAGINAL DRYNESS
     Dosage: 4 ?G, 2X/WEEK BEFORE BED
     Dates: start: 202010
  4. ALENDRONATE SODIUM. [Concomitant]
     Active Substance: ALENDRONATE SODIUM
  5. MULTIVITAMIN [Concomitant]
     Active Substance: VITAMINS
  6. IMVEXXY [Suspect]
     Active Substance: ESTRADIOL
     Indication: VULVOVAGINAL DISCOMFORT
     Dosage: 4 ?G, 1X/DAY BEFORE BED
     Route: 067
     Dates: start: 2019, end: 2019
  7. REPATHA [Concomitant]
     Active Substance: EVOLOCUMAB
  8. ASPIRIN. [Concomitant]
     Active Substance: ASPIRIN
  9. METOPROLOL SUCCINATE. [Concomitant]
     Active Substance: METOPROLOL SUCCINATE
  10. LEVOTHYROXINE. [Concomitant]
     Active Substance: LEVOTHYROXINE

REACTIONS (2)
  - Off label use [Not Recovered/Not Resolved]
  - Coronary artery occlusion [Recovering/Resolving]

NARRATIVE: CASE EVENT DATE: 2019
